FAERS Safety Report 23628538 (Version 1)
Quarter: 2024Q1

REPORT INFORMATION
  Report Type: Report from Study
  Country: US (occurrence: US)
  Receive Date: 20240313
  Receipt Date: 20240313
  Transmission Date: 20240409
  Serious: Yes (Hospitalization)
  Sender: FDA-Public Use
  Company Number: US-TAKEDA-2024TUS023221

PATIENT
  Age: 17 Year
  Sex: Male

DRUGS (1)
  1. VEDOLIZUMAB [Suspect]
     Active Substance: VEDOLIZUMAB
     Indication: Product used for unknown indication
     Dosage: UNK
     Route: 042
     Dates: start: 20240221

REACTIONS (4)
  - Hospitalisation [Unknown]
  - Inappropriate schedule of product administration [Unknown]
  - Product use issue [Unknown]
  - No adverse event [Unknown]

NARRATIVE: CASE EVENT DATE: 20240221
